FAERS Safety Report 10691323 (Version 8)
Quarter: 2015Q3

REPORT INFORMATION
  Report Type: Spontaneous
  Country: DE (occurrence: DE)
  Receive Date: 20150105
  Receipt Date: 20150729
  Transmission Date: 20151125
  Serious: Yes (Life-Threatening, Hospitalization)
  Sender: FDA-Public Use
  Company Number: PHHY2015DE000470

PATIENT
  Age: 47 Year
  Sex: Male

DRUGS (4)
  1. TASIGNA [Suspect]
     Active Substance: NILOTINIB
     Indication: CHRONIC MYELOID LEUKAEMIA
     Dosage: 600 MG, QD (2X2X150 MG DAILY)
     Route: 048
     Dates: start: 20140806, end: 20150203
  2. TASIGNA [Suspect]
     Active Substance: NILOTINIB
     Dosage: 200 MG, BID (2 X 200MG)
     Route: 048
  3. CIPROFLOXACIN. [Suspect]
     Active Substance: CIPROFLOXACIN
     Indication: INFECTION
     Dosage: 500 MG, BID (2X500 MG)
     Route: 048
  4. ADENURIC [Concomitant]
     Active Substance: FEBUXOSTAT
     Indication: PRODUCT USED FOR UNKNOWN INDICATION
     Dosage: 80 MG, UNK
     Route: 065

REACTIONS (14)
  - Muscle spasms [Recovered/Resolved]
  - Myalgia [Recovering/Resolving]
  - Pain in extremity [Recovering/Resolving]
  - Apparent death [Unknown]
  - Pyrexia [Recovered/Resolved]
  - Influenza [Unknown]
  - Gait disturbance [Recovering/Resolving]
  - Infection [Unknown]
  - Back pain [Not Recovered/Not Resolved]
  - Peripheral swelling [Recovering/Resolving]
  - Musculoskeletal stiffness [Recovering/Resolving]
  - Arthralgia [Not Recovered/Not Resolved]
  - Intervertebral disc protrusion [Recovering/Resolving]
  - White blood cell count increased [Unknown]

NARRATIVE: CASE EVENT DATE: 201408
